FAERS Safety Report 25519796 (Version 1)
Quarter: 2025Q3

REPORT INFORMATION
  Report Type: Spontaneous
  Country: US (occurrence: US)
  Receive Date: 20250704
  Receipt Date: 20250704
  Transmission Date: 20251020
  Serious: Yes (Hospitalization)
  Sender: TEVA
  Company Number: US-TEVA-VS-3348414

PATIENT
  Age: 69 Year
  Sex: Female

DRUGS (1)
  1. AUSTEDO XR [Suspect]
     Active Substance: DEUTETRABENAZINE
     Indication: Product used for unknown indication
     Route: 065

REACTIONS (5)
  - Hospitalisation [Unknown]
  - Fall [Unknown]
  - Feeling jittery [Unknown]
  - Product dose omission issue [Unknown]
  - Tremor [Unknown]

NARRATIVE: CASE EVENT DATE: 20250401
